FAERS Safety Report 23801463 (Version 2)
Quarter: 2024Q4

REPORT INFORMATION
  Report Type: Spontaneous
  Country: US (occurrence: US)
  Receive Date: 20240430
  Receipt Date: 20241110
  Transmission Date: 20250115
  Serious: No
  Sender: SANOFI AVENTIS
  Company Number: US-SA-SAC20240426000781

PATIENT
  Sex: Female

DRUGS (16)
  1. DUPIXENT [Suspect]
     Active Substance: DUPILUMAB
     Indication: Dermatitis atopic
     Dosage: 300 MG, QOW
     Route: 058
  2. ARIPIPRAZOLE [Concomitant]
     Active Substance: ARIPIPRAZOLE
     Dosage: UNK
  3. DICLOFENAC S AWA [Concomitant]
  4. EZETIMIBE [Concomitant]
     Active Substance: EZETIMIBE
  5. LISINOPRIL [Concomitant]
     Active Substance: LISINOPRIL
  6. MEMANTINE [Concomitant]
     Active Substance: MEMANTINE
  7. PREDNISONE [Concomitant]
     Active Substance: PREDNISONE
  8. PREGABALIN [Concomitant]
     Active Substance: PREGABALIN
  9. DESVENLAFAXINE [Concomitant]
     Active Substance: DESVENLAFAXINE
  10. TACROLIMUS [Concomitant]
     Active Substance: TACROLIMUS
  11. TRAMADOL HCL [Concomitant]
     Active Substance: TRAMADOL HYDROCHLORIDE
  12. VEOZAH [Concomitant]
     Active Substance: FEZOLINETANT
  13. HYDROCORTISONE [Concomitant]
     Active Substance: HYDROCORTISONE
  14. LEVETIRACETAM [Concomitant]
     Active Substance: LEVETIRACETAM
  15. LEVOTHYROXINE [Concomitant]
     Active Substance: LEVOTHYROXINE
  16. METHOCARBAMOL [Concomitant]
     Active Substance: METHOCARBAMOL

REACTIONS (2)
  - Dental care [Not Recovered/Not Resolved]
  - Jaw operation [Unknown]
